FAERS Safety Report 24966794 (Version 1)
Quarter: 2025Q1

REPORT INFORMATION
  Report Type: Spontaneous
  Country: AU (occurrence: AU)
  Receive Date: 20250213
  Receipt Date: 20250213
  Transmission Date: 20250409
  Serious: Yes (Other)
  Sender: SANOFI AVENTIS
  Company Number: AU-SA-2025SA042155

PATIENT

DRUGS (32)
  1. ACETAMINOPHEN\CODEINE PHOSPHATE [Suspect]
     Active Substance: ACETAMINOPHEN\CODEINE PHOSPHATE
  2. IOHEXOL [Suspect]
     Active Substance: IOHEXOL
  3. MEPERIDINE HYDROCHLORIDE [Suspect]
     Active Substance: MEPERIDINE HYDROCHLORIDE
  4. PACLITAXEL [Suspect]
     Active Substance: PACLITAXEL
  5. ASPIRIN [Suspect]
     Active Substance: ASPIRIN
  6. ATRACURIUM BESYLATE [Suspect]
     Active Substance: ATRACURIUM BESYLATE
  7. CEFAZOLIN SODIUM [Suspect]
     Active Substance: CEFAZOLIN SODIUM
  8. CELECOXIB [Suspect]
     Active Substance: CELECOXIB
  9. CODEINE [Suspect]
     Active Substance: CODEINE
  10. DICLOFENAC SODIUM [Suspect]
     Active Substance: DICLOFENAC SODIUM
  11. DIHYDROERGOTAMINE MESYLATE [Suspect]
     Active Substance: DIHYDROERGOTAMINE MESYLATE
  12. IBUPROFEN [Suspect]
     Active Substance: IBUPROFEN
  13. MIFEPRISTONE [Suspect]
     Active Substance: MIFEPRISTONE
  14. MORPHINE HYDROCHLORIDE [Suspect]
     Active Substance: MORPHINE HYDROCHLORIDE
  15. NAPROXEN [Suspect]
     Active Substance: NAPROXEN
  16. OXALIPLATIN [Suspect]
     Active Substance: OXALIPLATIN
  17. OXYCODONE [Suspect]
     Active Substance: OXYCODONE
  18. PANCURONIUM BROMIDE [Suspect]
     Active Substance: PANCURONIUM BROMIDE
  19. PANTOPRAZOLE SODIUM [Suspect]
     Active Substance: PANTOPRAZOLE SODIUM
  20. ACETAMINOPHEN [Suspect]
     Active Substance: ACETAMINOPHEN
  21. PRASUGREL HYDROCHLORIDE [Suspect]
     Active Substance: PRASUGREL HYDROCHLORIDE
  22. PROPOFOL [Suspect]
     Active Substance: PROPOFOL
  23. PROTAMINE SULFATE [Suspect]
     Active Substance: PROTAMINE SULFATE
  24. ROCURONIUM BROMIDE [Suspect]
     Active Substance: ROCURONIUM BROMIDE
  25. TRIAMCINOLONE ACETONIDE [Suspect]
     Active Substance: TRIAMCINOLONE ACETONIDE
  26. VECURONIUM BROMIDE [Suspect]
     Active Substance: VECURONIUM BROMIDE
  27. SUCCINYLCHOLINE CHLORIDE DIHYDRATE [Suspect]
     Active Substance: SUCCINYLCHOLINE CHLORIDE DIHYDRATE
  28. TICAGRELOR [Suspect]
     Active Substance: TICAGRELOR
  29. GADOLINIUM [Suspect]
     Active Substance: GADOLINIUM
  30. METHYLENE BLUE [Suspect]
     Active Substance: METHYLENE BLUE
  31. IRON POLYMALTOSE [Suspect]
     Active Substance: IRON POLYMALTOSE
  32. ACETYLCYSTEINE [Suspect]
     Active Substance: ACETYLCYSTEINE

REACTIONS (1)
  - Anaphylactic reaction [Unknown]
